FAERS Safety Report 5785708-8 (Version None)
Quarter: 2008Q2

REPORT INFORMATION
  Report Type: 
  Country: None (occurrence: None)
  Receive Date: 20080605
  Receipt Date: 20080313
  Transmission Date: 20081010
  Serious: No
  Sender: FDA-Public Use
  Company Number: A0711297A

PATIENT
  Age: 63 Year
  Sex: Female

DRUGS (3)
  1. ALLI [Suspect]
     Dates: end: 20080220
  2. BLOOD PRESSURE MEDICATION [Concomitant]
  3. MULTI-VITAMIN [Concomitant]

REACTIONS (2)
  - DIZZINESS [None]
  - PHARMACEUTICAL PRODUCT COMPLAINT [None]
